FAERS Safety Report 19382695 (Version 1)
Quarter: 2021Q2

REPORT INFORMATION
  Report Type: Spontaneous
  Country: US (occurrence: US)
  Receive Date: 20210607
  Receipt Date: 20210607
  Transmission Date: 20210717
  Serious: No
  Sender: FDA-Public Use
  Company Number: US-HARMONY BIOSCIENCES-2021HMY00380

PATIENT
  Sex: Male

DRUGS (2)
  1. WAKIX [Suspect]
     Active Substance: PITOLISANT HYDROCHLORIDE
     Dosage: UNK
  2. XYREM [Concomitant]
     Active Substance: SODIUM OXYBATE
     Dosage: UNK

REACTIONS (2)
  - Therapeutic product effect delayed [Recovered/Resolved]
  - Headache [Not Recovered/Not Resolved]
